FAERS Safety Report 5086090-4 (Version None)
Quarter: 2006Q3

REPORT INFORMATION
  Report Type: 
  Country: None (occurrence: None)
  Receive Date: 20060818
  Receipt Date: 20060808
  Transmission Date: 20061208
  Serious: Yes (Death)
  Sender: FDA-Public Use
  Company Number: A-CH2006-12835

PATIENT
  Age: 82 Year
  Sex: Female

DRUGS (1)
  1. TRACLEER [Suspect]
     Indication: PULMONARY HYPERTENSION

REACTIONS (3)
  - FALL [None]
  - HEAD INJURY [None]
  - PULMONARY HYPERTENSION [None]
